FAERS Safety Report 8093293-3 (Version None)
Quarter: 2012Q1

REPORT INFORMATION
  Report Type: 
  Country: None (occurrence: None)
  Receive Date: 20120128
  Receipt Date: 20111004
  Transmission Date: 20120608
  Serious: No
  Sender: FDA-Public Use
  Company Number: US-ABBOTT-11P-163-0834623-00

PATIENT
  Age: 43 Year
  Sex: Male

DRUGS (7)
  1. LOSARTAN POTASSIUM [Concomitant]
     Indication: PRODUCT USED FOR UNKNOWN INDICATION
     Dosage: 100 MG DAILY
  2. ANTIHISTAMINES [Concomitant]
     Dates: start: 20110501
  3. HUMIRA [Suspect]
     Dosage: NOT REPORTED
     Dates: start: 20110501, end: 20110610
  4. LABETALOL HCL [Concomitant]
     Indication: PRODUCT USED FOR UNKNOWN INDICATION
  5. HUMIRA [Suspect]
     Indication: CROHN'S DISEASE
     Dosage: 80 MG X1 - SECOND LOADING DOSE (DAY 15)
     Dates: start: 20110610
  6. SPIRONOLACTONE [Concomitant]
     Indication: PRODUCT USED FOR UNKNOWN INDICATION
     Dosage: 25 MG DAILY
  7. AMLODIPINE [Concomitant]
     Indication: PRODUCT USED FOR UNKNOWN INDICATION
     Dosage: 10 MG ONCE DAILY

REACTIONS (8)
  - INJECTION SITE ERYTHEMA [None]
  - INJECTION SITE PRURITUS [None]
  - MALAISE [None]
  - INJECTION SITE SWELLING [None]
  - INJECTION SITE REACTION [None]
  - ARTHRALGIA [None]
  - MUSCLE SPASMS [None]
  - ABDOMINAL PAIN [None]
